FAERS Safety Report 6603415-6 (Version None)
Quarter: 2010Q1

REPORT INFORMATION
  Report Type: 
  Country: None (occurrence: None)
  Receive Date: 20100226
  Receipt Date: 20090425
  Transmission Date: 20100710
  Serious: No
  Sender: FDA-Public Use
  Company Number: A0781890A

PATIENT
  Age: 59 Year
  Sex: Female

DRUGS (2)
  1. VALTREX [Suspect]
     Indication: DRUG USE FOR UNKNOWN INDICATION
  2. SULFASALAZINE [Concomitant]
     Indication: CROHN'S DISEASE

REACTIONS (1)
  - LABORATORY TEST ABNORMAL [None]
